FAERS Safety Report 17845618 (Version 6)
Quarter: 2022Q3

REPORT INFORMATION
  Report Type: Spontaneous
  Country: US (occurrence: US)
  Receive Date: 20200601
  Receipt Date: 20220715
  Transmission Date: 20221026
  Serious: No
  Sender: FDA-Public Use
  Company Number: US-PFIZER INC-2020187208

PATIENT
  Age: 68 Year
  Sex: Male

DRUGS (1)
  1. XELJANZ [Suspect]
     Active Substance: TOFACITINIB CITRATE
     Indication: Crohn^s disease
     Dosage: 10 MG, 2X/DAY (1 TABLET TWICE A DAY)

REACTIONS (3)
  - Off label use [Unknown]
  - Drug effective for unapproved indication [Unknown]
  - Thyroid disorder [Unknown]
